FAERS Safety Report 5276353-1 (Version None)
Quarter: 2007Q1

REPORT INFORMATION
  Report Type: 
  Country: None (occurrence: None)
  Receive Date: 20070326
  Receipt Date: 20070315
  Transmission Date: 20070707
  Serious: Yes (Other)
  Sender: FDA-Public Use
  Company Number: BR-PFIZER INC-2007021233

PATIENT
  Sex: Female
  Weight: 83 kg

DRUGS (2)
  1. DEPO-PROVERA [Suspect]
     Indication: CONTRACEPTION
     Route: 030
     Dates: start: 20031201, end: 20031201
  2. DEPO-PROVERA [Suspect]
     Route: 030
     Dates: start: 20061001, end: 20061001

REACTIONS (5)
  - AMENORRHOEA [None]
  - LOSS OF CONSCIOUSNESS [None]
  - NERVOUSNESS [None]
  - PARAESTHESIA [None]
  - WEIGHT INCREASED [None]
